FAERS Safety Report 9223436 (Version 2)
Quarter: 2013Q2

REPORT INFORMATION
  Report Type: Spontaneous
  Country: US (occurrence: US)
  Receive Date: 20130410
  Receipt Date: 20130607
  Transmission Date: 20140414
  Serious: No
  Sender: FDA-Public Use
  Company Number: US-009507513-1304USA001735

PATIENT
  Age: 32 Year
  Sex: Female

DRUGS (2)
  1. IMPLANON [Suspect]
     Dosage: FIRST IMPLANT
     Route: 059
     Dates: start: 20130402
  2. IMPLANON [Suspect]
     Dosage: SECOND IMPLANT
     Dates: start: 201304, end: 20130424

REACTIONS (6)
  - Implant site bruising [Unknown]
  - Tenderness [Unknown]
  - Accidental overdose [Unknown]
  - Device dislocation [Recovered/Resolved]
  - Device difficult to use [Recovered/Resolved]
  - Product quality issue [Unknown]
